FAERS Safety Report 9331297 (Version 1)
Quarter: 2013Q2

REPORT INFORMATION
  Report Type: Spontaneous
  Country: FR (occurrence: FR)
  Receive Date: 20130605
  Receipt Date: 20130605
  Transmission Date: 20140414
  Serious: Yes (Death, Hospitalization, Other)
  Sender: FDA-Public Use
  Company Number: FR-PFIZER INC-2013167892

PATIENT
  Age: 88 Year
  Sex: Female
  Weight: 49 kg

DRUGS (7)
  1. ALDACTONE [Suspect]
  2. STROMECTOL [Suspect]
     Dosage: 3 DF, SINGLE
     Dates: start: 20130116, end: 20130116
  3. COVERSYL [Suspect]
  4. LASILIX [Suspect]
  5. ISOPTIN [Concomitant]
  6. KARDEGIC [Concomitant]
  7. SPREGAL [Concomitant]
     Dosage: 3 DF
     Dates: start: 20130116, end: 20130116

REACTIONS (4)
  - Renal failure acute [Fatal]
  - Anuria [Fatal]
  - Acarodermatitis [Unknown]
  - Pulmonary embolism [Unknown]
